FAERS Safety Report 9312317 (Version 3)
Quarter: 2013Q2

REPORT INFORMATION
  Report Type: Spontaneous
  Country: AU (occurrence: AU)
  Receive Date: 20130528
  Receipt Date: 20130605
  Transmission Date: 20140414
  Serious: Yes (Life-Threatening, Other)
  Sender: FDA-Public Use
  Company Number: AU-JNJFOC-20130403300

PATIENT
  Age: 53 Year
  Sex: Female
  Weight: 60 kg

DRUGS (5)
  1. DOXORUBICIN HYDROCHLORIDE (CAELYX) [Suspect]
     Indication: BREAST CANCER METASTATIC
     Route: 041
     Dates: start: 20130312, end: 20130312
  2. DEXAMETHASONE [Concomitant]
     Indication: PREMEDICATION
     Route: 048
     Dates: start: 20130312, end: 20130312
  3. ZYRTEC [Concomitant]
     Indication: PREMEDICATION
     Route: 048
     Dates: start: 20130312, end: 20130312
  4. RANITIDINE [Concomitant]
     Indication: PREMEDICATION
     Route: 042
     Dates: start: 20130312, end: 20130312
  5. GRANISETRON [Concomitant]
     Indication: PREMEDICATION
     Route: 042

REACTIONS (1)
  - Anaphylactic reaction [Recovered/Resolved]
